FAERS Safety Report 7729724-5 (Version None)
Quarter: 2011Q3

REPORT INFORMATION
  Report Type: 
  Country: None (occurrence: None)
  Receive Date: 20110906
  Receipt Date: 20110902
  Transmission Date: 20111222
  Serious: Yes (Hospitalization)
  Sender: FDA-Public Use
  Company Number: DK-TEVA-299139ISR

PATIENT
  Sex: Female

DRUGS (5)
  1. SPIRONOLACTONE [Suspect]
  2. FLUTICASONE PROPIONATE [Concomitant]
  3. SPIRIVA [Concomitant]
  4. VENTOLIN [Concomitant]
  5. LAMOTRIGINE [Suspect]

REACTIONS (4)
  - DIZZINESS [None]
  - URINE COLOUR ABNORMAL [None]
  - HYPONATRAEMIA [None]
  - MALAISE [None]
